FAERS Safety Report 18158761 (Version 1)
Quarter: 2020Q3

REPORT INFORMATION
  Report Type: Spontaneous
  Country: US (occurrence: US)
  Receive Date: 20200818
  Receipt Date: 20200818
  Transmission Date: 20201103
  Serious: Yes (Hospitalization)
  Sender: FDA-Public Use
  Company Number: US-BAUSCH-BL-2020-022758

PATIENT
  Sex: Female

DRUGS (5)
  1. ADVANCED EYE RELIEF/ REDNESS INSTANT RELIEF [Suspect]
     Active Substance: NAPHAZOLINE HYDROCHLORIDE\POLYETHYLENE GLYCOL 300
     Indication: DRY EYE
     Dosage: 1 TO 2 DROPS DAILY IN EACH EYE.
     Route: 047
     Dates: start: 202008
  2. SYSTANE (HYPROMELLOSE 2910 (4000 MPA.S)) [Concomitant]
     Active Substance: HYPROMELLOSE 2910 (4000 MPA.S)
     Indication: PRODUCT USED FOR UNKNOWN INDICATION
  3. ADVANCED EYE RELIEF/ REDNESS INSTANT RELIEF [Suspect]
     Active Substance: NAPHAZOLINE HYDROCHLORIDE\POLYETHYLENE GLYCOL 300
     Indication: OCULAR HYPERAEMIA
     Dosage: 1 TO 2 DROPS DAILY IN EACH EYE.
     Route: 047
     Dates: end: 2020
  4. PREDNISOLONE EYE DROPS [Concomitant]
     Active Substance: PREDNISOLONE
     Indication: PRODUCT USED FOR UNKNOWN INDICATION
  5. MOXIFLOXACIN EYE DROPS [Concomitant]
     Active Substance: MOXIFLOXACIN
     Indication: PRODUCT USED FOR UNKNOWN INDICATION

REACTIONS (2)
  - COVID-19 [Unknown]
  - Expired product administered [Unknown]

NARRATIVE: CASE EVENT DATE: 2020
